FAERS Safety Report 7485014-X (Version None)
Quarter: 2011Q2

REPORT INFORMATION
  Report Type: 
  Country: None (occurrence: None)
  Receive Date: 20110517
  Receipt Date: 20101011
  Transmission Date: 20111010
  Serious: No
  Sender: FDA-Public Use
  Company Number: US-BAYER-201022576BCC

PATIENT
  Age: 59 Year
  Sex: Female

DRUGS (3)
  1. ALEVE [Suspect]
     Indication: BACK DISORDER
     Dosage: 440 MG, TID
     Dates: start: 20100930, end: 20101009
  2. ALEVE [Suspect]
     Dosage: 440 MG, BID
     Dates: start: 20101010
  3. SYNTHROID [Concomitant]

REACTIONS (1)
  - POOR QUALITY SLEEP [None]
